FAERS Safety Report 5810865-4 (Version None)
Quarter: 2008Q3

REPORT INFORMATION
  Report Type: 
  Country: None (occurrence: None)
  Receive Date: 20080710
  Receipt Date: 20080625
  Transmission Date: 20090109
  Serious: No
  Sender: FDA-Public Use
  Company Number: 2008BI013035

PATIENT
  Age: 45 Year
  Sex: Female
  Weight: 42 kg

DRUGS (9)
  1. TYSABRI [Suspect]
     Indication: MULTIPLE SCLEROSIS
     Dosage: 300 MG; QM; IV
     Route: 042
     Dates: start: 20070830
  2. AVONEX [Concomitant]
  3. VICODIN [Concomitant]
  4. DEMEROL [Concomitant]
  5. ATENOLOL [Concomitant]
  6. METOCLOPRAMIDE [Concomitant]
  7. AMITRIPTYLINE HCL [Concomitant]
  8. SOMA [Concomitant]
  9. NEXIUM [Concomitant]

REACTIONS (5)
  - ABDOMINAL PAIN UPPER [None]
  - DECREASED APPETITE [None]
  - DIARRHOEA [None]
  - INTESTINAL FUNCTIONAL DISORDER [None]
  - VOMITING [None]
